FAERS Safety Report 25766180 (Version 1)
Quarter: 2025Q3

REPORT INFORMATION
  Report Type: Spontaneous
  Country: US (occurrence: US)
  Receive Date: 20250905
  Receipt Date: 20250905
  Transmission Date: 20251021
  Serious: No
  Sender: DOMPE FARMACEUTICI
  Company Number: US-FARMAPROD-202408-2862

PATIENT
  Sex: Female

DRUGS (9)
  1. OXERVATE [Suspect]
     Active Substance: CENEGERMIN-BKBJ
     Indication: Neurotrophic keratopathy
     Route: 047
     Dates: start: 20240724
  2. OXERVATE [Suspect]
     Active Substance: CENEGERMIN-BKBJ
  3. AMMONIUM LACTATE [Concomitant]
     Active Substance: AMMONIUM LACTATE
  4. SYSTANE ULTRA PF [Concomitant]
  5. REPATHA [Concomitant]
     Active Substance: EVOLOCUMAB
  6. LISINOPRIL [Concomitant]
     Active Substance: LISINOPRIL
  7. LEVOTHYROXINE SODIUM [Concomitant]
     Active Substance: LEVOTHYROXINE SODIUM
  8. OMEPRAZOLE [Concomitant]
     Active Substance: OMEPRAZOLE
  9. PSYLLIUM [Concomitant]
     Active Substance: PLANTAGO SEED

REACTIONS (2)
  - COVID-19 [Not Recovered/Not Resolved]
  - Eye pain [Unknown]
